FAERS Safety Report 14249905 (Version 1)
Quarter: 2017Q4

REPORT INFORMATION
  Report Type: Spontaneous
  Country: US (occurrence: US)
  Receive Date: 20171204
  Receipt Date: 20171204
  Transmission Date: 20180321
  Serious: Yes (Disabling)
  Sender: FDA-Public Use
  Company Number: None

PATIENT
  Age: 15 Year
  Sex: Male
  Weight: 76.5 kg

DRUGS (8)
  1. ACCUTANE [Concomitant]
     Active Substance: ISOTRETINOIN
  2. FLUVOXAMINE [Suspect]
     Active Substance: FLUVOXAMINE
     Indication: AUTISM SPECTRUM DISORDER
     Route: 048
     Dates: start: 20170421, end: 20171204
  3. METHYLPHENIDATE ER [Concomitant]
     Active Substance: METHYLPHENIDATE
  4. GUANFACINE. [Concomitant]
     Active Substance: GUANFACINE
  5. FISH OIL [Concomitant]
     Active Substance: FISH OIL
  6. FLUVOXAMINE [Suspect]
     Active Substance: FLUVOXAMINE
     Indication: OBSESSIVE-COMPULSIVE DISORDER
     Route: 048
     Dates: start: 20170421, end: 20171204
  7. MULTIVITAMIN [Concomitant]
     Active Substance: VITAMINS
  8. FLUVOXAMINE [Suspect]
     Active Substance: FLUVOXAMINE
     Indication: DEPRESSION
     Route: 048
     Dates: start: 20170421, end: 20171204

REACTIONS (5)
  - Dysphemia [None]
  - Social avoidant behaviour [None]
  - Psychomotor skills impaired [None]
  - Treatment failure [None]
  - Slow speech [None]

NARRATIVE: CASE EVENT DATE: 20170901
